FAERS Safety Report 16842780 (Version 1)
Quarter: 2019Q3

REPORT INFORMATION
  Report Type: Other
  Country: SE (occurrence: SE)
  Receive Date: 20190924
  Receipt Date: 20190924
  Transmission Date: 20191005
  Serious: Yes (Other)
  Sender: FDA-Public Use
  Company Number: SE-CELLTRION INC.-2019SE024933

PATIENT

DRUGS (7)
  1. RITEMVIA [Suspect]
     Active Substance: RITUXIMAB
     Dosage: UNK
     Dates: start: 20190513, end: 20190513
  2. RITEMVIA [Suspect]
     Active Substance: RITUXIMAB
     Indication: HAIRY CELL LEUKAEMIA
     Dosage: UNK
     Dates: start: 20181119, end: 20181119
  3. MABTHERA [Suspect]
     Active Substance: RITUXIMAB
     Indication: HAIRY CELL LEUKAEMIA
     Dosage: UNK
     Dates: start: 20180716, end: 20180716
  4. MABTHERA [Suspect]
     Active Substance: RITUXIMAB
     Dosage: UNK
     Dates: start: 20180723, end: 20180723
  5. MABTHERA [Suspect]
     Active Substance: RITUXIMAB
     Dosage: UNK
     Dates: start: 20180806, end: 20180806
  6. MABTHERA [Suspect]
     Active Substance: RITUXIMAB
     Dosage: UNK
     Dates: start: 20180730, end: 20180730
  7. RITEMVIA [Suspect]
     Active Substance: RITUXIMAB
     Dosage: UNK
     Dates: start: 20190218, end: 20190218

REACTIONS (2)
  - Arthralgia [Unknown]
  - Face oedema [Unknown]
